FAERS Safety Report 5247588-9 (Version None)
Quarter: 2007Q1

REPORT INFORMATION
  Report Type: 
  Country: None (occurrence: None)
  Receive Date: 20070227
  Receipt Date: 20070215
  Transmission Date: 20070707
  Serious: Yes (Other)
  Sender: FDA-Public Use
  Company Number: CA-SOLVAY-00305001203

PATIENT
  Age: 17133 Day
  Sex: Male
  Weight: 69.6 kg

DRUGS (4)
  1. RANITIDINE [Concomitant]
     Indication: ILL-DEFINED DISORDER
     Dosage: DAILY DOSE: 150 MILLIGRAM(S) (DID NOT TAKE)
     Route: 048
     Dates: start: 20041209
  2. MARINOL [Suspect]
     Indication: NEURALGIA
     Dosage: DAILY DOSE: 20 MILLIGRAM(S)
     Route: 048
     Dates: start: 20050314, end: 20050321
  3. FLEXERIL [Concomitant]
     Indication: ILL-DEFINED DISORDER
     Dosage: DAILY DOSE: 20 MILLIGRAM(S) (AS NEEDED)
     Route: 048
     Dates: start: 20041209
  4. MARIJUANA [Suspect]
     Indication: ILL-DEFINED DISORDER
     Dosage: DAILY DOSE:  UNKNOWN
     Route: 055

REACTIONS (2)
  - DRUG DEPENDENCE [None]
  - HALLUCINATION, AUDITORY [None]
